FAERS Safety Report 5021381-4 (Version None)
Quarter: 2006Q2

REPORT INFORMATION
  Report Type: 
  Country: None (occurrence: None)
  Receive Date: 20060425
  Receipt Date: 20050921
  Transmission Date: 20061013
  Serious: Yes (Other)
  Sender: FDA-Public Use
  Company Number: WAES 0509USA03051

PATIENT
  Age: 6 Year
  Sex: Female
  Weight: 27.6694 kg

DRUGS (6)
  1. SINGULAIR [Suspect]
     Indication: ASTHMA
     Dosage: 5 MG HS PO
     Route: 048
     Dates: start: 20041001, end: 20050701
  2. SINGULAIR [Suspect]
     Indication: RHINITIS PERENNIAL
     Dosage: 5 MG HS PO
     Route: 048
     Dates: start: 20041001, end: 20050701
  3. SINGULAIR [Suspect]
     Indication: ASTHMA
     Dosage: 5 MG HS PO
     Route: 048
     Dates: start: 20050801, end: 20050922
  4. SINGULAIR [Suspect]
     Indication: RHINITIS PERENNIAL
     Dosage: 5 MG HS PO
     Route: 048
     Dates: start: 20050801, end: 20050922
  5. ASTELIN [Concomitant]
  6. MAXAIR [Concomitant]

REACTIONS (1)
  - HALLUCINATION [None]
